FAERS Safety Report 4870207-8 (Version None)
Quarter: 2005Q4

REPORT INFORMATION
  Report Type: 
  Country: None (occurrence: None)
  Receive Date: 20051228
  Receipt Date: 20051227
  Transmission Date: 20060501
  Serious: Yes (Death, Other)
  Sender: FDA-Public Use
  Company Number: 200510943BVD

PATIENT
  Age: 79 Year
  Sex: Female

DRUGS (1)
  1. AVELOX [Suspect]
     Dosage: 400 MG, TOTAL DAILY, ORAL
     Route: 048

REACTIONS (2)
  - ARRHYTHMIA [None]
  - CARDIAC FAILURE [None]
